FAERS Safety Report 4663873-3 (Version None)
Quarter: 2005Q2

REPORT INFORMATION
  Report Type: 
  Country: None (occurrence: None)
  Receive Date: 20050511
  Receipt Date: 20050210
  Transmission Date: 20051028
  Serious: Yes (Other)
  Sender: FDA-Public Use
  Company Number: 354707

PATIENT
  Age: 43 Year
  Sex: Female

DRUGS (2)
  1. PEGASYS [Suspect]
     Dates: end: 20040915
  2. COPEGUS [Suspect]
     Dosage: ORAL
     Route: 048
     Dates: end: 20040915

REACTIONS (5)
  - ALOPECIA [None]
  - DISEASE RECURRENCE [None]
  - IRRITABILITY [None]
  - VIRAL INFECTION [None]
  - WHITE BLOOD CELL COUNT DECREASED [None]
